FAERS Safety Report 17864261 (Version 1)
Quarter: 2020Q2

REPORT INFORMATION
  Report Type: Spontaneous
  Country: SI (occurrence: SI)
  Receive Date: 20200605
  Receipt Date: 20200605
  Transmission Date: 20200714
  Serious: Yes (Other)
  Sender: FDA-Public Use
  Company Number: SI-ROCHE-2612665

PATIENT
  Age: 55 Year
  Sex: Male

DRUGS (5)
  1. PLATELETS [Concomitant]
     Active Substance: HUMAN PLATELET, ALLOGENIC
     Dosage: TRANSFUSION BEFORE MABTHERA INFUSION
     Route: 065
  2. RED BLOOD CELLS [Concomitant]
     Active Substance: HUMAN RED BLOOD CELL
     Dosage: TRANSFUSION BEFORE MABTHERA INFUSION
     Route: 065
  3. MABTHERA [Suspect]
     Active Substance: RITUXIMAB
     Indication: MANTLE CELL LYMPHOMA
     Dosage: 500 MG CONCENTRATE FOR SOLUTION FOR INFUSION
     Route: 041
     Dates: start: 20200408, end: 20200409
  4. MABTHERA [Suspect]
     Active Substance: RITUXIMAB
     Dosage: 100 MG CONCENTRATE FOR SOLUTION FOR INFUSION
     Route: 041
     Dates: start: 20200408, end: 20200409
  5. PRENESSA [Concomitant]
     Active Substance: PERINDOPRIL
     Route: 065

REACTIONS (5)
  - Pulmonary oedema [Recovered/Resolved]
  - Chills [Recovered/Resolved]
  - Oxygen saturation decreased [Recovered/Resolved]
  - Infusion related reaction [Recovered/Resolved]
  - Body temperature increased [Recovered/Resolved]

NARRATIVE: CASE EVENT DATE: 20200408
